FAERS Safety Report 12208487 (Version 6)
Quarter: 2021Q1

REPORT INFORMATION
  Report Type: Report from Study
  Country: US (occurrence: US)
  Receive Date: 20160324
  Receipt Date: 20210201
  Transmission Date: 20210419
  Serious: Yes (Hospitalization)
  Sender: FDA-Public Use
  Company Number: US-CELGENEUS-USA-2016035193

PATIENT
  Age: 51 Year
  Sex: Female
  Weight: 88.6 kg

DRUGS (9)
  1. POMALYST [Suspect]
     Active Substance: POMALIDOMIDE
     Dosage: 4MG
     Route: 048
     Dates: start: 20151211, end: 20160113
  2. CISPLATIN. [Suspect]
     Active Substance: CISPLATIN
     Indication: PLASMA CELL MYELOMA
     Dosage: 20MG
     Route: 041
     Dates: start: 20151113, end: 20151116
  3. DARATUMUMAB [Suspect]
     Active Substance: DARATUMUMAB
     Dosage: 16MG/KG
     Route: 041
     Dates: start: 20151211, end: 20160113
  4. POMALYST [Suspect]
     Active Substance: POMALIDOMIDE
     Indication: PLASMA CELL MYELOMA
     Dosage: 4MG
     Route: 048
     Dates: start: 20150127, end: 20150818
  5. DEXAMETHASONE ORAL [Suspect]
     Active Substance: DEXAMETHASONE
     Indication: PLASMA CELL MYELOMA
     Dosage: 40MG
     Route: 048
     Dates: start: 20151113, end: 20151116
  6. CYTOXAN [Suspect]
     Active Substance: CYCLOPHOSPHAMIDE
     Indication: PLASMA CELL MYELOMA
     Dosage: 800MG
     Route: 041
     Dates: start: 20151113, end: 20151116
  7. DEXAMETHASONE ORAL [Suspect]
     Active Substance: DEXAMETHASONE
     Dosage: 20MG
     Route: 048
     Dates: start: 20151211, end: 20160113
  8. ETOPOSIDE. [Suspect]
     Active Substance: ETOPOSIDE
     Indication: PLASMA CELL MYELOMA
     Dosage: 80MG
     Route: 041
     Dates: start: 20151113, end: 20151116
  9. DARATUMUMAB [Suspect]
     Active Substance: DARATUMUMAB
     Indication: PLASMA CELL MYELOMA
     Dosage: 16MG/KG
     Route: 041
     Dates: start: 20151020, end: 20151103

REACTIONS (4)
  - VIth nerve paralysis [Recovered/Resolved]
  - Arthralgia [Recovered/Resolved]
  - Acute kidney injury [Not Recovered/Not Resolved]
  - Hypercalcaemia [Recovered/Resolved]

NARRATIVE: CASE EVENT DATE: 20151103
